FAERS Safety Report 7903994-2 (Version None)
Quarter: 2011Q4

REPORT INFORMATION
  Report Type: 
  Country: None (occurrence: None)
  Receive Date: 20111109
  Receipt Date: 20111103
  Transmission Date: 20120403
  Serious: Yes (Other)
  Sender: FDA-Public Use
  Company Number: CN-ASTRAZENECA-2011SE66350

PATIENT

DRUGS (3)
  1. MIDAZOLAM [Suspect]
     Indication: ANAESTHESIA
     Dosage: 2-5 MG
     Route: 042
  2. PROPOFOL [Suspect]
     Indication: ANAESTHESIA
     Dosage: 1 MG/KG INITIAL DOSE, THEN 2-4 ML/10 SEC
     Route: 042
  3. ATROPINE [Suspect]
     Indication: ANAESTHESIA
     Route: 042

REACTIONS (1)
  - ASTHMA [None]
